FAERS Safety Report 5290814-0 (Version None)
Quarter: 2007Q2

REPORT INFORMATION
  Report Type: 
  Country: None (occurrence: None)
  Receive Date: 20070409
  Receipt Date: 20070328
  Transmission Date: 20071010
  Serious: Yes (Other)
  Sender: FDA-Public Use
  Company Number: US-PFIZER INC-2007005310

PATIENT
  Age: 45 Year
  Sex: Female
  Weight: 77.1 kg

DRUGS (1)
  1. CHANTIX [Suspect]
     Indication: SMOKING CESSATION THERAPY
     Route: 048
     Dates: start: 20061123, end: 20070108

REACTIONS (5)
  - ABDOMINAL DISTENSION [None]
  - AGEUSIA [None]
  - FLATULENCE [None]
  - HEADACHE [None]
  - PARAESTHESIA ORAL [None]
